FAERS Safety Report 12222116 (Version 3)
Quarter: 2016Q2

REPORT INFORMATION
  Report Type: Spontaneous
  Country: US (occurrence: US)
  Receive Date: 20160330
  Receipt Date: 20160429
  Transmission Date: 20160815
  Serious: No
  Sender: FDA-Public Use
  Company Number: US-PFIZER INC-2016165446

PATIENT
  Age: 58 Year
  Sex: Female
  Weight: 52 kg

DRUGS (8)
  1. PROCARDIA XL [Suspect]
     Active Substance: NIFEDIPINE
     Indication: RAYNAUD^S PHENOMENON
     Dosage: 90 MG, 3X/DAY (30MG THREE TABLETS BY MOUTH THREE TIMES A DAY)
     Route: 048
     Dates: end: 20160321
  2. VITAMIN A [Concomitant]
     Active Substance: VITAMIN A
     Indication: GOUT
     Dosage: 8000 IU, 1X/DAY
     Route: 048
  3. PROCARDIA XL [Suspect]
     Active Substance: NIFEDIPINE
     Indication: HYPERTENSION
  4. LUTEIN [Concomitant]
     Active Substance: LUTEIN
     Indication: EYE DISORDER
     Dosage: 20 MG, 1X/DAY
     Route: 048
  5. CALCIUM +VIT D [Concomitant]
     Active Substance: CALCIUM\VITAMIN D
     Indication: SUPPLEMENTATION THERAPY
     Dosage: UNK, 1X/DAY (CALCIUM 600MG / COLECALCIFEROL 800IU)
     Route: 048
  6. FISH OIL [Concomitant]
     Active Substance: FISH OIL
     Indication: SUPPLEMENTATION THERAPY
     Dosage: 1200 MG, 1X/DAY
     Route: 048
  7. VITAMIN E [Concomitant]
     Active Substance: .ALPHA.-TOCOPHEROL
     Indication: SUPPLEMENTATION THERAPY
     Dosage: 400 IU, 1X/DAY
     Route: 048
  8. LISINOPRIL. [Concomitant]
     Active Substance: LISINOPRIL
     Indication: HYPERTENSION
     Dosage: 10 MG, 1X/DAY
     Route: 048
     Dates: start: 2015

REACTIONS (1)
  - Gingival hyperplasia [Not Recovered/Not Resolved]

NARRATIVE: CASE EVENT DATE: 201501
